FAERS Safety Report 24150880 (Version 1)
Quarter: 2024Q3

REPORT INFORMATION
  Report Type: Spontaneous
  Country: US (occurrence: US)
  Receive Date: 20240730
  Receipt Date: 20240730
  Transmission Date: 20241016
  Serious: Yes (Other)
  Sender: AMGEN
  Company Number: US-AMGEN-USASP2024148436

PATIENT
  Sex: Female

DRUGS (2)
  1. RIABNI [Suspect]
     Active Substance: RITUXIMAB-ARRX
     Indication: Nervous system disorder
     Dosage: UNK
     Route: 065
     Dates: start: 20240724
  2. RIABNI [Suspect]
     Active Substance: RITUXIMAB-ARRX
     Indication: Systemic lupus erythematosus

REACTIONS (3)
  - Hepatitis B reactivation [Unknown]
  - Adverse reaction [Unknown]
  - Off label use [Unknown]

NARRATIVE: CASE EVENT DATE: 20240724
